FAERS Safety Report 10045774 (Version 1)
Quarter: 2014Q1

REPORT INFORMATION
  Report Type: Spontaneous
  Country: US (occurrence: US)
  Receive Date: 20140328
  Receipt Date: 20140328
  Transmission Date: 20141002
  Serious: Yes (Other)
  Sender: FDA-Public Use
  Company Number: US-GE HEALTHCARE MEDICAL DIAGNOSTICS-OSCN-PR-1312S-0147

PATIENT
  Sex: Female

DRUGS (4)
  1. GADOLINIUM (UNSPECIFIED) [Suspect]
     Indication: HEPATIC MASS
     Route: 042
     Dates: start: 20010706, end: 20010706
  2. GADOLINIUM (UNSPECIFIED) [Suspect]
     Indication: HEPATIC MASS
     Route: 042
     Dates: start: 20020304, end: 20020304
  3. GADOLINIUM (UNSPECIFIED) [Suspect]
     Indication: RENAL TRANSPLANT
     Route: 042
     Dates: start: 20040326, end: 20040326
  4. MAGNEVIST [Suspect]
     Indication: PRODUCT USED FOR UNKNOWN INDICATION
     Route: 042
     Dates: start: 20050330, end: 20050330

REACTIONS (1)
  - Nephrogenic systemic fibrosis [Not Recovered/Not Resolved]
